FAERS Safety Report 7911795-4 (Version None)
Quarter: 2011Q4

REPORT INFORMATION
  Report Type: 
  Country: None (occurrence: None)
  Receive Date: 20111114
  Receipt Date: 20111114
  Transmission Date: 20120403
  Serious: Yes (Life-Threatening, Hospitalization)
  Sender: FDA-Public Use
  Company Number: None

PATIENT
  Age: 88 Year
  Sex: Female
  Weight: 52.163 kg

DRUGS (1)
  1. VICTOZA [Suspect]
     Indication: DIABETES MELLITUS
     Dosage: .6MG FOR 1 WEEK THEN 1.2 MG
     Route: 023
     Dates: start: 20110717, end: 20110919

REACTIONS (3)
  - RENAL FAILURE [None]
  - PANCREATITIS [None]
  - HEPATITIS [None]
